FAERS Safety Report 6007513-X (Version None)
Quarter: 2008Q4

REPORT INFORMATION
  Report Type: 
  Country: None (occurrence: None)
  Receive Date: 20081217
  Receipt Date: 20080501
  Transmission Date: 20090506
  Serious: No
  Sender: FDA-Public Use
  Company Number: US-ASTRAZENECA-2008UW09006

PATIENT
  Age: 72 Year
  Sex: Male
  Weight: 171 kg

DRUGS (6)
  1. CRESTOR [Suspect]
     Indication: BLOOD CHOLESTEROL INCREASED
     Route: 048
  2. AZOR [Concomitant]
  3. FLOMAX [Concomitant]
  4. AVODART [Concomitant]
  5. ALEVE [Concomitant]
  6. M.V.I. [Concomitant]

REACTIONS (1)
  - PAIN IN EXTREMITY [None]
